FAERS Safety Report 5591989-6 (Version None)
Quarter: 2008Q1

REPORT INFORMATION
  Report Type: 
  Country: None (occurrence: None)
  Receive Date: 20080115
  Receipt Date: 20080111
  Transmission Date: 20080703
  Serious: Yes (Congenital Anomaly)
  Sender: FDA-Public Use
  Company Number: SE-ASTRAZENECA-2007SE06540

PATIENT
  Sex: Female

DRUGS (1)
  1. ATACAND [Suspect]
     Route: 061

REACTIONS (2)
  - HYDRONEPHROSIS [None]
  - VESICOURETERIC REFLUX [None]
